FAERS Safety Report 11253328 (Version 1)
Quarter: 2015Q3

REPORT INFORMATION
  Report Type: Spontaneous
  Country: US (occurrence: US)
  Receive Date: 20150709
  Receipt Date: 20150709
  Transmission Date: 20151125
  Serious: No
  Sender: FDA-Public Use
  Company Number: US-TEVA-482212USA

PATIENT
  Sex: Female

DRUGS (4)
  1. LEVOFLOXACIN TABLETS, 250 MG, 500 MG AND 750 MG [Suspect]
     Active Substance: LEVOFLOXACIN
     Indication: NASOPHARYNGITIS
     Route: 048
  2. LITHIUM. [Concomitant]
     Active Substance: LITHIUM
  3. ZOLOFT [Concomitant]
     Active Substance: SERTRALINE HYDROCHLORIDE
  4. CALCIUM [Concomitant]
     Active Substance: CALCIUM

REACTIONS (8)
  - Palpitations [Recovered/Resolved]
  - Malaise [Unknown]
  - Abdominal pain upper [Unknown]
  - Muscle spasms [Unknown]
  - Asthenia [Unknown]
  - Tendon disorder [Unknown]
  - Nasal congestion [Unknown]
  - Back pain [Unknown]

NARRATIVE: CASE EVENT DATE: 201405
